FAERS Safety Report 8046500-7 (Version None)
Quarter: 2012Q1

REPORT INFORMATION
  Report Type: 
  Country: None (occurrence: None)
  Receive Date: 20120113
  Receipt Date: 20120106
  Transmission Date: 20120608
  Serious: Yes (Other)
  Sender: FDA-Public Use
  Company Number: US-ASTRAZENECA-2011SE77352

PATIENT
  Age: 62 Year
  Sex: Female

DRUGS (4)
  1. PREVACID [Concomitant]
  2. NEXIUM [Suspect]
     Indication: GASTROOESOPHAGEAL REFLUX DISEASE
     Route: 048
  3. PRILOSEC [Suspect]
     Route: 048
  4. PROTONIX [Concomitant]

REACTIONS (5)
  - WRONG DRUG ADMINISTERED [None]
  - DRUG DOSE OMISSION [None]
  - NEOPLASM MALIGNANT [None]
  - HIATUS HERNIA [None]
  - DRUG INEFFECTIVE [None]
